FAERS Safety Report 24167146 (Version 1)
Quarter: 2024Q3

REPORT INFORMATION
  Report Type: Report from Study
  Country: FR (occurrence: FR)
  Receive Date: 20240802
  Receipt Date: 20240802
  Transmission Date: 20241017
  Serious: Yes (Other)
  Sender: SERVIER
  Company Number: FR-SERVIER-S21010111

PATIENT

DRUGS (6)
  1. PEGASPARGASE [Suspect]
     Active Substance: PEGASPARGASE
     Indication: Acute lymphocytic leukaemia
     Dosage: 900 IU, OTHER, D8, D36 AND D64
     Route: 042
     Dates: start: 20191123
  2. VINCRISTINE SULFATE [Suspect]
     Active Substance: VINCRISTINE SULFATE
     Indication: Acute lymphocytic leukaemia
     Dosage: 1.1 MG, D1, D8, D29, D36, D57 AND D64
     Route: 042
     Dates: start: 20191217
  3. MERCAPTOPURINE [Suspect]
     Active Substance: MERCAPTOPURINE
     Indication: Acute lymphocytic leukaemia
     Dosage: 36 MG, D1 TO D21, D29 TO D49, D57 TO D77
     Route: 048
     Dates: start: 20191217
  4. DEXAMETHASONE [Suspect]
     Active Substance: DEXAMETHASONE
     Indication: Acute lymphocytic leukaemia
     Dosage: 4.5 MG, D1 TO D5, D29 TO D33 AND D57 TO D61
     Route: 048
     Dates: start: 20191217
  5. METHOTREXATE [Suspect]
     Active Substance: METHOTREXATE
     Indication: Acute lymphocytic leukaemia
     Dosage: 12 MG, D2, D30 AND D58
     Route: 037
     Dates: start: 20191218
  6. METHOTREXATE [Suspect]
     Active Substance: METHOTREXATE
     Dosage: 18 MG, D8, D18, D22, D36, D43
     Route: 048
     Dates: start: 20091124

REACTIONS (1)
  - Hyperlipidaemia [Recovering/Resolving]

NARRATIVE: CASE EVENT DATE: 20191231
